FAERS Safety Report 5535398-4 (Version None)
Quarter: 2007Q4

REPORT INFORMATION
  Report Type: 
  Country: None (occurrence: None)
  Receive Date: 20071206
  Receipt Date: 20071130
  Transmission Date: 20080405
  Serious: Yes (Hospitalization)
  Sender: FDA-Public Use
  Company Number: US-AVENTIS-200711556US

PATIENT
  Sex: Female
  Weight: 107 kg

DRUGS (4)
  1. KETEK [Suspect]
     Indication: BRONCHITIS
     Route: 048
     Dates: start: 20060301, end: 20060301
  2. CIPRO [Suspect]
     Dosage: DOSE: UNK
  3. CIPRO [Suspect]
     Indication: GASTRITIS
     Dosage: DOSE: UNK
  4. TRI-VENT HC [Concomitant]
     Dosage: DOSE: UNK
     Route: 048
     Dates: start: 20060301, end: 20060301

REACTIONS (16)
  - ABDOMINAL PAIN [None]
  - ALANINE AMINOTRANSFERASE INCREASED [None]
  - ASPARTATE AMINOTRANSFERASE INCREASED [None]
  - BACK PAIN [None]
  - BILIRUBIN CONJUGATED INCREASED [None]
  - BLOOD ALKALINE PHOSPHATASE INCREASED [None]
  - BLOOD BILIRUBIN INCREASED [None]
  - BODY TEMPERATURE INCREASED [None]
  - CHROMATURIA [None]
  - EOSINOPHIL COUNT INCREASED [None]
  - GASTRITIS [None]
  - HEPATIC STEATOSIS [None]
  - HEPATOCELLULAR DAMAGE [None]
  - PAIN [None]
  - PYREXIA [None]
  - VOMITING [None]
